FAERS Safety Report 5154743-5 (Version None)
Quarter: 2006Q4

REPORT INFORMATION
  Report Type: 
  Country: None (occurrence: None)
  Receive Date: 20061115
  Receipt Date: 20061115
  Transmission Date: 20070319
  Serious: Yes (Hospitalization)
  Sender: FDA-Public Use
  Company Number: None

PATIENT
  Age: 76 Year
  Sex: Female

DRUGS (6)
  1. ALIMTA [Suspect]
     Indication: LUNG CANCER METASTATIC
  2. ALBUTEROL [Concomitant]
  3. ADVAR [Concomitant]
  4. VASERETIC [Concomitant]
  5. OXYCONTIN [Concomitant]
  6. FOLIC ACID [Concomitant]

REACTIONS (4)
  - DIZZINESS [None]
  - HYPERHIDROSIS [None]
  - OXYGEN SATURATION DECREASED [None]
  - SYNCOPE [None]
